FAERS Safety Report 12278714 (Version 18)
Quarter: 2018Q1

REPORT INFORMATION
  Report Type: Report from Study
  Country: US (occurrence: US)
  Receive Date: 20160418
  Receipt Date: 20180111
  Transmission Date: 20180508
  Serious: Yes (Hospitalization, Disabling)
  Sender: FDA-Public Use
  Company Number: US-ACTELION-A-US2016-133331

PATIENT
  Age: 72 Year
  Sex: Female
  Weight: 97.52 kg

DRUGS (37)
  1. PHOSLO [Concomitant]
     Active Substance: CALCIUM ACETATE
     Dosage: UNK
     Dates: start: 20160806
  2. ADVAIR HFA [Concomitant]
     Active Substance: FLUTICASONE PROPIONATE\SALMETEROL XINAFOATE
     Dosage: 2 PUFF, UNK
  3. DUONEB [Concomitant]
     Active Substance: ALBUTEROL SULFATE\IPRATROPIUM BROMIDE
     Dosage: UNK
     Dates: start: 20160810
  4. SODIUM CHLORIDE. [Concomitant]
     Active Substance: SODIUM CHLORIDE
     Dosage: UNK
     Dates: start: 20160810
  5. DILTIAZEM. [Concomitant]
     Active Substance: DILTIAZEM
  6. TYLENOL [Concomitant]
     Active Substance: ACETAMINOPHEN
     Dosage: UNK
     Dates: start: 20160725
  7. PEPCID [Concomitant]
     Active Substance: FAMOTIDINE
     Dosage: UNK
     Dates: start: 20160806
  8. ZOFRAN [Concomitant]
     Active Substance: ONDANSETRON HYDROCHLORIDE
     Dosage: UNK
     Dates: start: 20160806
  9. ANCEF [Concomitant]
     Active Substance: CEFAZOLIN SODIUM
     Dosage: UNK
     Dates: start: 20160810
  10. OPSUMIT [Suspect]
     Active Substance: MACITENTAN
     Dosage: UNK
     Route: 048
  11. SOTALOL. [Concomitant]
     Active Substance: SOTALOL
  12. ZAROXOLYN [Concomitant]
     Active Substance: METOLAZONE
  13. ALPRAZOLAM. [Concomitant]
     Active Substance: ALPRAZOLAM
     Dosage: 0.5 MG, BID
     Dates: start: 20170810
  14. MIDODRINE [Concomitant]
     Active Substance: MIDODRINE
     Dosage: UNK
     Dates: start: 20160810
  15. VITAMINS NOS [Concomitant]
     Active Substance: VITAMINS
     Dosage: UNK
     Dates: start: 20160810
  16. XARELTO [Concomitant]
     Active Substance: RIVAROXABAN
  17. HEPARIN [Concomitant]
     Active Substance: HEPARIN SODIUM
     Dosage: UNK
     Dates: start: 20160810
  18. OPSUMIT [Suspect]
     Active Substance: MACITENTAN
     Indication: PULMONARY HYPERTENSION
     Dosage: 10 MG, QD
     Route: 048
     Dates: start: 20150222
  19. SODIUM CHLORIDE. [Concomitant]
     Active Substance: SODIUM CHLORIDE
     Dosage: UNK
     Dates: start: 20160725
  20. VITAMINS NOS [Concomitant]
     Active Substance: VITAMINS
     Dosage: UNK
     Dates: start: 20160810
  21. SERTRALINE [Concomitant]
     Active Substance: SERTRALINE HYDROCHLORIDE
     Dosage: 50 MG, UNK
  22. FLUOROMETHOLONE. [Concomitant]
     Active Substance: FLUOROMETHOLONE
  23. AMIODARONE [Concomitant]
     Active Substance: AMIODARONE
  24. ARANESP [Concomitant]
     Active Substance: DARBEPOETIN ALFA
     Dosage: UNK
     Dates: start: 20160806
  25. ADEMPAS [Concomitant]
     Active Substance: RIOCIGUAT
  26. ELIQUIS [Concomitant]
     Active Substance: APIXABAN
     Dosage: UNK
     Dates: start: 20160806
  27. FLONASE [Concomitant]
     Active Substance: FLUTICASONE PROPIONATE
     Dosage: UNK
     Dates: start: 20160806
  28. METOPROLOL. [Concomitant]
     Active Substance: METOPROLOL
     Dosage: UNK, BID
  29. MIDODRINE [Concomitant]
     Active Substance: MIDODRINE
     Dosage: 10 MG, TID
     Dates: start: 20170809
  30. PROAIR HFA [Concomitant]
     Active Substance: ALBUTEROL SULFATE
     Dosage: 2 PUFF, Q4HRS
  31. REVATIO [Concomitant]
     Active Substance: SILDENAFIL CITRATE
  32. OXYGEN. [Concomitant]
     Active Substance: OXYGEN
  33. PROTONIX [Concomitant]
     Active Substance: PANTOPRAZOLE SODIUM
     Dosage: UNK
     Dates: start: 20160725
  34. MARCAINE [Concomitant]
     Active Substance: BUPIVACAINE HYDROCHLORIDE
     Dosage: UNK
     Dates: start: 20160810
  35. ROBINUL [Concomitant]
     Active Substance: GLYCOPYRROLATE
     Dosage: UNK
     Dates: start: 20160810
  36. VERSED [Concomitant]
     Active Substance: MIDAZOLAM HYDROCHLORIDE
     Dosage: UNK
     Dates: start: 20160810
  37. ZOFRAN [Concomitant]
     Active Substance: ONDANSETRON HYDROCHLORIDE
     Dosage: UNK
     Dates: start: 20160810

REACTIONS (34)
  - Gastrointestinal haemorrhage [Recovering/Resolving]
  - Haemoglobin decreased [Recovering/Resolving]
  - Atrial flutter [Recovered/Resolved]
  - Oedema peripheral [Recovered/Resolved]
  - Cardiac disorder [Recovering/Resolving]
  - Somnolence [Unknown]
  - Cardiac failure [Unknown]
  - Atrial fibrillation [Unknown]
  - Clostridium test positive [Recovered/Resolved]
  - Dyspnoea exertional [Unknown]
  - Haematochezia [Recovering/Resolving]
  - Diarrhoea [Recovered/Resolved]
  - Haemorrhoids [Recovered/Resolved]
  - Haemodialysis [Unknown]
  - Azotaemia [Recovered/Resolved]
  - Cardiac failure congestive [Unknown]
  - Fluid overload [Unknown]
  - Right ventricular failure [Recovered/Resolved]
  - Renal failure [Recovered/Resolved]
  - Oedema [Recovered/Resolved]
  - Diverticulum [Recovered/Resolved]
  - Pulmonary arterial hypertension [Unknown]
  - Malaise [Unknown]
  - Pneumonia [Unknown]
  - Dyspnoea [Unknown]
  - Hypotension [Recovering/Resolving]
  - Fatigue [Unknown]
  - Lower respiratory tract infection [Unknown]
  - Cardiac failure acute [Recovered/Resolved]
  - Chronic obstructive pulmonary disease [Unknown]
  - Clostridium difficile colitis [Recovered/Resolved]
  - Nasopharyngitis [Unknown]
  - End stage renal disease [Recovered/Resolved]
  - Condition aggravated [Recovered/Resolved]

NARRATIVE: CASE EVENT DATE: 201502
